FAERS Safety Report 10468981 (Version 1)
Quarter: 2014Q3

REPORT INFORMATION
  Report Type: Report from Study
  Country: US (occurrence: US)
  Receive Date: 20140923
  Receipt Date: 20140923
  Transmission Date: 20150326
  Serious: Yes (Hospitalization)
  Sender: FDA-Public Use
  Company Number: US-BIOGENIDEC-2014BI096620

PATIENT
  Age: 34 Year
  Sex: Female

DRUGS (1)
  1. TYSABRI [Suspect]
     Active Substance: NATALIZUMAB
     Indication: MULTIPLE SCLEROSIS
     Route: 042
     Dates: start: 20140303, end: 20140804

REACTIONS (18)
  - Pain [Recovered/Resolved]
  - Weight decreased [Recovered/Resolved]
  - Abasia [Recovered/Resolved]
  - Muscular weakness [Recovered/Resolved]
  - Cognitive disorder [Recovered/Resolved]
  - Balance disorder [Recovered/Resolved]
  - Malaise [Recovered/Resolved]
  - Trigeminal neuralgia [Recovered/Resolved]
  - Tremor [Recovered/Resolved]
  - Hypotonia [Recovered/Resolved]
  - Peroneal nerve palsy [Recovered/Resolved]
  - Aphagia [Recovered/Resolved]
  - Fall [Recovered/Resolved]
  - Tooth extraction [Recovered/Resolved]
  - Periorbital haematoma [Recovered/Resolved]
  - Fibromyalgia [Recovered/Resolved]
  - Motor dysfunction [Recovered/Resolved]
  - Laceration [Recovered/Resolved]

NARRATIVE: CASE EVENT DATE: 2014
